FAERS Safety Report 9962669 (Version 2)
Quarter: 2014Q1

REPORT INFORMATION
  Report Type: Report from Study
  Country: US (occurrence: US)
  Receive Date: 20140305
  Receipt Date: 20140305
  Transmission Date: 20141002
  Serious: No
  Sender: FDA-Public Use
  Company Number: US-ABBVIE-13P-163-1094253-00

PATIENT
  Age: 57 Year
  Sex: Female

DRUGS (7)
  1. HUMIRA [Suspect]
     Indication: CROHN^S DISEASE
     Dates: start: 20130227, end: 20130502
  2. LAMICTAL [Concomitant]
     Indication: DEPRESSION
  3. LEXAPRO [Concomitant]
     Indication: DEPRESSION
  4. ABILIFY [Concomitant]
     Indication: DEPRESSION
  5. CLONAZEPAM [Concomitant]
     Indication: DEPRESSION
  6. LIALDA [Concomitant]
     Indication: CROHN^S DISEASE
  7. TRAZODONE [Concomitant]
     Indication: DEPRESSION
     Dosage: AT NIGHT

REACTIONS (6)
  - Sluggishness [Not Recovered/Not Resolved]
  - Fatigue [Recovering/Resolving]
  - Crohn^s disease [Recovering/Resolving]
  - Diarrhoea [Recovering/Resolving]
  - Dyspepsia [Recovering/Resolving]
  - Cough [Not Recovered/Not Resolved]
